FAERS Safety Report 8997839 (Version 1)
Quarter: 2013Q1

REPORT INFORMATION
  Report Type: Spontaneous
  Country: FR (occurrence: FR)
  Receive Date: 20130104
  Receipt Date: 20130104
  Transmission Date: 20140127
  Serious: Yes (Death, Congenital Anomaly)
  Sender: FDA-Public Use
  Company Number: FR-GLAXOSMITHKLINE-B0854999A

PATIENT
  Sex: Female

DRUGS (1)
  1. DEROXAT [Suspect]
     Indication: DEPRESSION
     Route: 064
     Dates: start: 201205

REACTIONS (7)
  - Multiple congenital abnormalities [Fatal]
  - Foetal growth restriction [Fatal]
  - Oedema [Fatal]
  - Dysmorphism [Fatal]
  - Cleft lip and palate [Fatal]
  - Exomphalos [Fatal]
  - Foetal exposure during pregnancy [Unknown]
